FAERS Safety Report 6693265-7 (Version None)
Quarter: 2010Q2

REPORT INFORMATION
  Report Type: 
  Country: None (occurrence: None)
  Receive Date: 20100422
  Receipt Date: 20100420
  Transmission Date: 20101027
  Serious: Yes (Hospitalization)
  Sender: FDA-Public Use
  Company Number: FR-MERCK-1004FRA00082

PATIENT
  Age: 34 Year
  Sex: Female

DRUGS (13)
  1. EMEND [Suspect]
     Route: 048
     Dates: end: 20100211
  2. EMEND [Suspect]
     Route: 048
  3. LEXOMIL [Suspect]
     Route: 048
     Dates: end: 20100211
  4. ZOPHREN [Suspect]
     Route: 065
     Dates: start: 20100128, end: 20100211
  5. NEXIUM [Suspect]
     Route: 065
     Dates: end: 20100211
  6. SPASFON [Suspect]
     Route: 065
     Dates: end: 20100211
  7. DEBRIDAT [Suspect]
     Route: 065
     Dates: end: 20100211
  8. SOLUPRED [Suspect]
     Route: 065
     Dates: end: 20100211
  9. METOPIMAZINE [Suspect]
     Route: 065
     Dates: end: 20100211
  10. MOTILIUM [Concomitant]
     Route: 065
  11. PRIMPERAN [Concomitant]
     Route: 065
  12. ALUMINUM HYDROXIDE AND MAGNESIUM TRISILICATE [Concomitant]
     Route: 065
  13. CISPLATIN [Concomitant]
     Route: 065

REACTIONS (1)
  - CYTOLYTIC HEPATITIS [None]
